FAERS Safety Report 14471184 (Version 3)
Quarter: 2018Q1

REPORT INFORMATION
  Report Type: Spontaneous
  Country: US (occurrence: US)
  Receive Date: 20180131
  Receipt Date: 20180220
  Transmission Date: 20180509
  Serious: Yes (Death, Hospitalization, Other)
  Sender: FDA-Public Use
  Company Number: US-PFIZER INC-2018035486

PATIENT
  Age: 79 Year
  Sex: Male
  Weight: 106.12 kg

DRUGS (1)
  1. SUTENT [Suspect]
     Active Substance: SUNITINIB MALATE
     Indication: RENAL CANCER
     Dosage: 50 MG, CYCLIC (DL-28 Q42 DAYS)
     Route: 048
     Dates: start: 201712

REACTIONS (6)
  - Muscular weakness [Unknown]
  - Diverticulitis [Unknown]
  - Death [Fatal]
  - Haemorrhoids [Unknown]
  - Gastrointestinal ulcer [Unknown]
  - Internal haemorrhage [Unknown]

NARRATIVE: CASE EVENT DATE: 20180113
